FAERS Safety Report 4609084-9 (Version None)
Quarter: 2005Q1

REPORT INFORMATION
  Report Type: 
  Country: None (occurrence: None)
  Receive Date: 20050311
  Receipt Date: 20050222
  Transmission Date: 20050727
  Serious: Yes (Other)
  Sender: FDA-Public Use
  Company Number: CEL-2005-00282-ROC

PATIENT
  Age: 42 Year
  Sex: Female

DRUGS (8)
  1. DELSYM [Suspect]
     Indication: COUGH
     Dosage: 10ML ONCE, ROUTE PER ORAL
     Route: 048
     Dates: start: 20050214, end: 20050214
  2. WEELBUTRIN (BUPROPION HYDROCHLORIDE) [Suspect]
     Indication: SMOKING CESSATION THERAPY
     Dosage: DEE IMAGE
     Route: 048
  3. ROBITUSSIN [Suspect]
     Indication: COUGH
     Dosage: PER ORAL
     Route: 048
     Dates: end: 20050213
  4. PROMETHAZINE DM (PROMETHAZINE DM) [Suspect]
     Indication: COUGH
     Dosage: PER ORAL
     Route: 048
     Dates: end: 20050201
  5. ALLEGRA [Concomitant]
  6. THYROXINE (LEVOTHYROXINE SODIUM) [Concomitant]
  7. AZITHROMYCIN [Concomitant]
  8. BIAXIN [Concomitant]

REACTIONS (17)
  - ANXIETY [None]
  - BLOOD PRESSURE INCREASED [None]
  - DEHYDRATION [None]
  - DIZZINESS [None]
  - DRUG INTERACTION [None]
  - DYSGEUSIA [None]
  - FATIGUE [None]
  - FEELING ABNORMAL [None]
  - FEELING HOT [None]
  - HEART RATE IRREGULAR [None]
  - HYPERREFLEXIA [None]
  - LOSS OF CONSCIOUSNESS [None]
  - MUSCLE TWITCHING [None]
  - MYOCLONUS [None]
  - NAUSEA [None]
  - SEROTONIN SYNDROME [None]
  - TREMOR [None]
